FAERS Safety Report 7068400-1 (Version None)
Quarter: 2010Q4

REPORT INFORMATION
  Report Type: 
  Country: None (occurrence: None)
  Receive Date: 20101028
  Receipt Date: 20101018
  Transmission Date: 20110411
  Serious: No
  Sender: FDA-Public Use
  Company Number: B0672558A

PATIENT
  Sex: Female

DRUGS (2)
  1. AUGMENTIN '125' [Suspect]
     Indication: PRODUCT USED FOR UNKNOWN INDICATION
     Route: 065
  2. ATARAX [Suspect]
     Dosage: 50MG PER DAY
     Route: 030
     Dates: start: 20100717, end: 20100717

REACTIONS (2)
  - DYSKINESIA [None]
  - URTICARIA [None]
